FAERS Safety Report 21286033 (Version 1)
Quarter: 2022Q3

REPORT INFORMATION
  Report Type: Spontaneous
  Country: US (occurrence: US)
  Receive Date: 20220902
  Receipt Date: 20220902
  Transmission Date: 20221026
  Serious: Yes (Other)
  Sender: FDA-Public Use
  Company Number: US-Accord-274928

PATIENT
  Sex: Male

DRUGS (1)
  1. ATORVASTATIN [Suspect]
     Active Substance: ATORVASTATIN
     Indication: Pulmonary hypertension
     Dosage: DAILY
     Route: 048

REACTIONS (7)
  - Seizure like phenomena [Unknown]
  - Muscle spasms [Unknown]
  - Neck pain [Unknown]
  - Hypokinesia [Unknown]
  - Dysstasia [Unknown]
  - Walking disability [Unknown]
  - Off label use [Unknown]
